FAERS Safety Report 12243199 (Version 1)
Quarter: 2016Q2

REPORT INFORMATION
  Report Type: Spontaneous
  Country: US (occurrence: US)
  Receive Date: 20160406
  Receipt Date: 20160406
  Transmission Date: 20160815
  Serious: No
  Sender: FDA-Public Use
  Company Number: US-SA-2015SA049054

PATIENT
  Age: 37 Year
  Sex: Female

DRUGS (4)
  1. ALLEGRA-D [Suspect]
     Active Substance: FEXOFENADINE\PSEUDOEPHEDRINE
     Indication: NASAL CONGESTION
     Dosage: TAKEN FROM- YESTERDAY AND TAKEN TO- YESTERDAY.?BATCH NO- G OR 6 A073T
     Route: 048
     Dates: start: 20150413, end: 20150413
  2. ALLEGRA-D [Suspect]
     Active Substance: FEXOFENADINE\PSEUDOEPHEDRINE
     Indication: MULTIPLE ALLERGIES
     Dosage: TAKEN FROM- YESTERDAY AND TAKEN TO- YESTERDAY.?BATCH NO- G OR 6 A073T
     Route: 048
     Dates: start: 20150413, end: 20150413
  3. ALLEGRA-D [Suspect]
     Active Substance: FEXOFENADINE\PSEUDOEPHEDRINE
     Indication: PARANASAL SINUS DISCOMFORT
     Dosage: TAKEN FROM- YESTERDAY AND TAKEN TO- YESTERDAY.?BATCH NO- G OR 6 A073T
     Route: 048
     Dates: start: 20150413, end: 20150413
  4. ALLEGRA-D [Suspect]
     Active Substance: FEXOFENADINE\PSEUDOEPHEDRINE
     Indication: SECRETION DISCHARGE
     Dosage: TAKEN FROM- YESTERDAY AND TAKEN TO- YESTERDAY.?BATCH NO- G OR 6 A073T
     Route: 048
     Dates: start: 20150413, end: 20150413

REACTIONS (4)
  - Paraesthesia oral [Not Recovered/Not Resolved]
  - Insomnia [Not Recovered/Not Resolved]
  - Drug ineffective [Unknown]
  - Palpitations [Not Recovered/Not Resolved]
